FAERS Safety Report 10135959 (Version 3)
Quarter: 2014Q2

REPORT INFORMATION
  Report Type: Report from Study
  Country: CA (occurrence: CA)
  Receive Date: 20140429
  Receipt Date: 20140603
  Transmission Date: 20141212
  Serious: Yes (Other)
  Sender: FDA-Public Use
  Company Number: CA-ROCHE-1290709

PATIENT
  Age: 47 Year
  Sex: Male
  Weight: 122.5 kg

DRUGS (27)
  1. RITUXAN [Suspect]
     Indication: GRANULOMATOSIS WITH POLYANGIITIS
     Dosage: LAST DOSE PRIOR TO SAE ON: 07/NOV/2013
     Route: 042
     Dates: start: 20120206
  2. PREDNISONE [Suspect]
     Indication: PRODUCT USED FOR UNKNOWN INDICATION
     Route: 065
  3. PREDNISONE [Suspect]
     Route: 065
  4. PREDNISONE [Suspect]
     Route: 065
  5. FORTEO [Suspect]
     Route: 058
     Dates: start: 201403
  6. DIPHENHYDRAMINE HCL [Concomitant]
     Indication: PREMEDICATION
     Route: 048
     Dates: start: 20120206
  7. DIPHENHYDRAMINE HCL [Concomitant]
     Route: 048
     Dates: start: 20120910, end: 20120924
  8. DIPHENHYDRAMINE HCL [Concomitant]
     Route: 048
     Dates: start: 20130404, end: 20130418
  9. DIPHENHYDRAMINE HCL [Concomitant]
     Route: 048
     Dates: start: 20131022, end: 20131107
  10. ACETAMINOPHEN [Concomitant]
     Indication: PREMEDICATION
     Route: 048
     Dates: start: 20120206
  11. ACETAMINOPHEN [Concomitant]
     Route: 048
     Dates: start: 20120910, end: 20120924
  12. ACETAMINOPHEN [Concomitant]
     Route: 048
     Dates: start: 20130404, end: 20130418
  13. ACETAMINOPHEN [Concomitant]
     Route: 048
     Dates: start: 20131022, end: 20131107
  14. METHYLPREDNISOLONE [Concomitant]
     Indication: PREMEDICATION
     Route: 042
     Dates: start: 20120206
  15. METHOTREXATE [Concomitant]
     Dosage: 25MG/ML
     Route: 065
  16. EURO-FOLIC [Concomitant]
  17. MONOCOR [Concomitant]
  18. RAMIPRIL [Concomitant]
  19. ADALAT [Concomitant]
  20. GLYCLAZIDE [Concomitant]
  21. AAS [Concomitant]
  22. METFORMIN [Concomitant]
     Route: 065
  23. LANSOPRAZOLE [Concomitant]
  24. D-TABS [Concomitant]
  25. ELAVIL (CANADA) [Concomitant]
  26. FOSAVANCE [Concomitant]
  27. ATORVASTATIN [Concomitant]

REACTIONS (4)
  - Rib fracture [Unknown]
  - Arthralgia [Recovering/Resolving]
  - Testicular pain [Recovering/Resolving]
  - Orchitis noninfective [Recovering/Resolving]
